FAERS Safety Report 7926760-0 (Version None)
Quarter: 2011Q4

REPORT INFORMATION
  Report Type: 
  Country: None (occurrence: None)
  Receive Date: 20111118
  Receipt Date: 20111109
  Transmission Date: 20120403
  Serious: No
  Sender: FDA-Public Use
  Company Number: US-JNJFOC-20111104619

PATIENT
  Sex: Female
  Weight: 62.6 kg

DRUGS (2)
  1. FENTANYL-100 [Suspect]
     Route: 062
     Dates: start: 20111001
  2. FENTANYL-100 [Suspect]
     Indication: TETHERED CORD SYNDROME
     Dosage: NDC#0781-7242-55
     Route: 062
     Dates: start: 20110101, end: 20110101

REACTIONS (3)
  - DRUG INEFFECTIVE [None]
  - WRONG TECHNIQUE IN DRUG USAGE PROCESS [None]
  - PRODUCT QUALITY ISSUE [None]
